FAERS Safety Report 17922279 (Version 1)
Quarter: 2020Q2

REPORT INFORMATION
  Report Type: Spontaneous
  Country: US (occurrence: US)
  Receive Date: 20200620
  Receipt Date: 20200620
  Transmission Date: 20200714
  Serious: Yes (Other)
  Sender: FDA-Public Use
  Company Number: None

PATIENT
  Age: 27 Year
  Sex: Female
  Weight: 110.25 kg

DRUGS (12)
  1. ACETAMINOPHEN 500MG [Concomitant]
     Active Substance: ACETAMINOPHEN
  2. CALCIUM 1000 IU [Concomitant]
  3. PRENATALS + DHA [Concomitant]
  4. ODANSETRON ODT 8MG [Concomitant]
  5. MAGNESIUM CITRATE 400MG [Concomitant]
  6. NP THYROID [Suspect]
     Active Substance: LEVOTHYROXINE\LIOTHYRONINE
     Indication: HYPOTHYROIDISM
     Dosage: ?          QUANTITY:1 TABLET(S);?
     Route: 048
     Dates: start: 20191116, end: 20200207
  7. BENADRYL GENERIC 25MG [Concomitant]
  8. VITAMIN D3 [Concomitant]
     Active Substance: CHOLECALCIFEROL
  9. CETIRIZINE [Concomitant]
     Active Substance: CETIRIZINE HYDROCHLORIDE
  10. MONTELUKAST [Concomitant]
     Active Substance: MONTELUKAST SODIUM
  11. GAVISCON 12FL OZ [Concomitant]
  12. CITRACAL + D3 1200MG [Concomitant]

REACTIONS (10)
  - Stress [None]
  - Pregnancy [None]
  - Product measured potency issue [None]
  - Abortion spontaneous [None]
  - Tremor [None]
  - Recalled product administered [None]
  - Muscle spasms [None]
  - Vaginal haemorrhage [None]
  - Exposure during pregnancy [None]
  - Recalled product [None]

NARRATIVE: CASE EVENT DATE: 20191228
